FAERS Safety Report 9871459 (Version 1)
Quarter: 2014Q1

REPORT INFORMATION
  Report Type: Spontaneous
  Country: US (occurrence: None)
  Receive Date: 20140204
  Receipt Date: 20140204
  Transmission Date: 20141002
  Serious: No
  Sender: FDA-Public Use
  Company Number: None

PATIENT
  Age: 83 Year
  Sex: Male
  Weight: 83.92 kg

DRUGS (15)
  1. XARELTO [Suspect]
     Dosage: 20 MG ?QUANTITY = 1?WITH EVENING MEAL?BY MOUTH
     Route: 048
     Dates: start: 20130618, end: 20131206
  2. OMEPRAZOLE [Concomitant]
  3. SERTRALINE [Concomitant]
  4. LASARTAN [Concomitant]
  5. GABAPENTIN [Concomitant]
  6. CHOLEDROL [Concomitant]
  7. HCTZ [Concomitant]
  8. MONTELUKAST [Suspect]
  9. ATVORASTATIN [Concomitant]
  10. TERASOSIN [Concomitant]
  11. NEBULIZER (WITH ALBUTEROL) [Concomitant]
  12. SLYRIVA [Concomitant]
  13. SYMBICORT [Concomitant]
  14. ALBUTEROL (PROVENTIL) [Concomitant]
  15. HYDRACODONE [Concomitant]

REACTIONS (1)
  - Epistaxis [None]
